FAERS Safety Report 18876916 (Version 1)
Quarter: 2021Q1

REPORT INFORMATION
  Report Type: Spontaneous
  Country: ES (occurrence: ES)
  Receive Date: 20210211
  Receipt Date: 20210211
  Transmission Date: 20210420
  Serious: Yes (Life-Threatening)
  Sender: FDA-Public Use
  Company Number: ES-JNJFOC-20210208486

PATIENT
  Age: 13 Year
  Sex: Female

DRUGS (11)
  1. DIPYRONE [Suspect]
     Active Substance: DIPYRONE
     Indication: PAIN MANAGEMENT
     Route: 065
  2. PARACETAMOL [Suspect]
     Active Substance: ACETAMINOPHEN
     Indication: PAIN MANAGEMENT
     Route: 065
  3. PROPOFOL. [Suspect]
     Active Substance: PROPOFOL
     Indication: PAIN MANAGEMENT
     Route: 008
  4. MIDAZOLAM. [Suspect]
     Active Substance: MIDAZOLAM
     Indication: PAIN MANAGEMENT
     Route: 065
  5. IBUPROFEN. [Suspect]
     Active Substance: IBUPROFEN
     Indication: PAIN MANAGEMENT
     Route: 065
  6. GABAPENTIN. [Suspect]
     Active Substance: GABAPENTIN
     Indication: PAIN MANAGEMENT
     Route: 065
  7. DEXKETOPROFEN [Suspect]
     Active Substance: DEXKETOPROFEN
     Indication: PAIN MANAGEMENT
     Route: 065
  8. MORPHINE [Suspect]
     Active Substance: MORPHINE
     Indication: PAIN MANAGEMENT
     Route: 065
  9. ROPIVACAINE. [Suspect]
     Active Substance: ROPIVACAINE HYDROCHLORIDE
     Indication: PAIN MANAGEMENT
     Route: 008
  10. FENTANYL. [Suspect]
     Active Substance: FENTANYL
     Indication: PAIN MANAGEMENT
     Route: 065
  11. FENTANYL. [Suspect]
     Active Substance: FENTANYL
     Route: 008

REACTIONS (2)
  - Product use in unapproved indication [Unknown]
  - Adverse event [Unknown]
